FAERS Safety Report 5586298-5 (Version None)
Quarter: 2008Q1

REPORT INFORMATION
  Report Type: 
  Country: None (occurrence: None)
  Receive Date: 20080107
  Receipt Date: 20080107
  Transmission Date: 20080703
  Serious: Yes (Other)
  Sender: FDA-Public Use
  Company Number: None

PATIENT
  Age: 3 Year
  Sex: Female
  Weight: 15.8759 kg

DRUGS (2)
  1. CEFPROZIL [Suspect]
     Indication: EAR INFECTION
     Dosage: 1.5 TEASPOONS BID  PO
     Route: 048
     Dates: start: 20071231, end: 20071231
  2. CEFPROZIL [Suspect]

REACTIONS (5)
  - COUGH [None]
  - DYSPNOEA [None]
  - PYREXIA [None]
  - URTICARIA [None]
  - WHEEZING [None]
